FAERS Safety Report 5789160-8 (Version None)
Quarter: 2008Q2

REPORT INFORMATION
  Report Type: 
  Country: None (occurrence: None)
  Receive Date: 20080626
  Receipt Date: 20080624
  Transmission Date: 20081010
  Serious: Yes (Other)
  Sender: FDA-Public Use
  Company Number: PT-WYE-G01757908

PATIENT
  Age: 74 Year
  Sex: Male

DRUGS (4)
  1. TYGACIL [Suspect]
     Indication: SEPTIC SHOCK
     Route: 042
     Dates: start: 20080613, end: 20080624
  2. IMIPENEM [Suspect]
     Indication: SEPTIC SHOCK
     Dosage: UNKNOWN
     Dates: start: 20080613
  3. CIPROFLOXACIN HCL [Suspect]
     Indication: SEPTIC SHOCK
     Dosage: UNKNOWN
     Dates: start: 20080621
  4. AMITRIPTYLINE HCL [Suspect]
     Indication: SEPTIC SHOCK
     Dosage: UNKNOWN
     Dates: start: 20080613

REACTIONS (2)
  - LEUKOPENIA [None]
  - THROMBOCYTOPENIA [None]
